FAERS Safety Report 11507120 (Version 1)
Quarter: 2015Q3

REPORT INFORMATION
  Report Type: Spontaneous
  Country: AU (occurrence: AU)
  Receive Date: 20150915
  Receipt Date: 20150915
  Transmission Date: 20151125
  Serious: Yes (Other)
  Sender: FDA-Public Use
  Company Number: PHHY2015AU107168

PATIENT
  Sex: Male

DRUGS (1)
  1. EXFORGE [Suspect]
     Active Substance: AMLODIPINE BESYLATE\VALSARTAN
     Indication: HYPERTENSION
     Dosage: 1 DF, QD (VALSARTAN 320 AND AMLODIPINE 5 UNITS NOT SPECIFIED)
     Route: 065

REACTIONS (3)
  - Dementia Alzheimer^s type [Unknown]
  - Malaise [Unknown]
  - Hyperhidrosis [Unknown]
